FAERS Safety Report 9781610 (Version 1)
Quarter: 2013Q4

REPORT INFORMATION
  Report Type: Spontaneous
  Country: US (occurrence: US)
  Receive Date: 20131224
  Receipt Date: 20131224
  Transmission Date: 20140711
  Serious: Yes (Hospitalization)
  Sender: FDA-Public Use
  Company Number: US-009507513-1312USA010284

PATIENT
  Age: 16 Year
  Sex: Female

DRUGS (2)
  1. MAXALT [Suspect]
     Indication: MIGRAINE
     Dosage: UNK
     Route: 048
     Dates: start: 20131203
  2. ALTAVERA [Concomitant]
     Indication: MENORRHAGIA
     Dosage: UNK
     Dates: start: 201301

REACTIONS (1)
  - Drug ineffective [Unknown]
